FAERS Safety Report 11708243 (Version 1)
Quarter: 2015Q4

REPORT INFORMATION
  Report Type: Spontaneous
  Country: US (occurrence: US)
  Receive Date: 20151104
  Receipt Date: 20151104
  Transmission Date: 20160304
  Serious: No
  Sender: FDA-Public Use
  Company Number: US-ELI_LILLY_AND_COMPANY-US201108004415

PATIENT
  Age: 66 Year
  Sex: Female

DRUGS (1)
  1. FORTEO [Suspect]
     Active Substance: TERIPARATIDE

REACTIONS (8)
  - Gastroenteritis viral [Unknown]
  - Nerve compression [Unknown]
  - Cystitis [Unknown]
  - Chromaturia [Unknown]
  - Constipation [Unknown]
  - Intervertebral disc operation [Unknown]
  - Ear infection [Unknown]
  - Asthenia [Unknown]

NARRATIVE: CASE EVENT DATE: 201105
